FAERS Safety Report 6908286 (Version 9)
Quarter: 2012Q4

REPORT INFORMATION
  Report Type: 
  Country: CA (occurrence: CA)
  Receive Date: 20090212
  Receipt Date: 20121102
  Transmission Date: 20130627
  Serious: Yes (Death, Hospitalization, Other)
  Sender: FDA-Public Use
  Company Number: PHHY2008CA30041

PATIENT
  Sex: Female

DRUGS (2)
  1. SANDOSTATIN LAR [Suspect]
     Indication: GASTRINOMA
     Dosage: 30 mg every 4 weeks
     Route: 030
     Dates: start: 20040406, end: 20060822
  2. SANDOSTATIN LAR [Suspect]
     Dosage: 30 mg every 4 weeks
     Route: 030
     Dates: start: 20061017

REACTIONS (20)
  - Terminal state [Fatal]
  - Mobility decreased [Unknown]
  - Palpitations [Unknown]
  - Malaise [Unknown]
  - Flank pain [Unknown]
  - General physical health deterioration [Unknown]
  - Oedema peripheral [Not Recovered/Not Resolved]
  - Localised oedema [Not Recovered/Not Resolved]
  - Asthenia [Unknown]
  - Blood pressure diastolic decreased [Unknown]
  - Hypersomnia [Unknown]
  - Musculoskeletal pain [Recovered/Resolved]
  - Gait disturbance [Unknown]
  - Pain [Unknown]
  - Heart rate increased [Unknown]
  - Pain in extremity [Unknown]
  - Arthralgia [Unknown]
  - Hypoaesthesia [Unknown]
  - Arthritis [Unknown]
  - Injection site pain [Recovering/Resolving]
